FAERS Safety Report 7457088-3 (Version None)
Quarter: 2011Q2

REPORT INFORMATION
  Report Type: 
  Country: None (occurrence: None)
  Receive Date: 20110426
  Receipt Date: 20110411
  Transmission Date: 20111010
  Serious: Yes (Other)
  Sender: FDA-Public Use
  Company Number: 2011MA003699

PATIENT
  Age: 47 Year
  Sex: Male

DRUGS (2)
  1. METHYLPREDNISOLONE ACETATE [Concomitant]
  2. LIDOCAINE HCL [Suspect]
     Indication: OCCIPITAL NEURALGIA
     Dosage: 1X, INJ

REACTIONS (2)
  - MUSCLE SPASMS [None]
  - HEADACHE [None]
